FAERS Safety Report 12546858 (Version 2)
Quarter: 2016Q3

REPORT INFORMATION
  Report Type: Spontaneous
  Country: FR (occurrence: FR)
  Receive Date: 20160711
  Receipt Date: 20160812
  Transmission Date: 20161109
  Serious: Yes (Death, Hospitalization)
  Sender: FDA-Public Use
  Company Number: FR-009507513-1607FRA003466

PATIENT
  Age: 82 Year
  Sex: Male

DRUGS (15)
  1. CASODEX [Suspect]
     Active Substance: BICALUTAMIDE
     Indication: PROSTATE CANCER
     Dosage: 50 MG (1 DF), PER DAY
     Route: 048
     Dates: start: 20160210
  2. BISOPROLOL EG [Suspect]
     Active Substance: BISOPROLOL
     Indication: HYPERTENSION
     Dosage: 1.25 MG, PER DAY
     Route: 048
     Dates: start: 20151127
  3. DIFFU-K [Suspect]
     Active Substance: POTASSIUM CHLORIDE
     Indication: HYPOKALAEMIA
     Dosage: 1 DF, PER DAY
     Route: 048
     Dates: start: 20160528, end: 20160606
  4. XTANDI [Suspect]
     Active Substance: ENZALUTAMIDE
     Indication: PROSTATE CANCER
     Dosage: 160 MG, UNK
     Route: 048
     Dates: start: 20160524
  5. LACTULOSE MYLAN [Suspect]
     Active Substance: LACTULOSE
     Indication: CONSTIPATION
     Dosage: 2 DF, PER DAY
     Route: 048
     Dates: start: 20160528
  6. PRAVASTATIN EG [Suspect]
     Active Substance: PRAVASTATIN SODIUM
     Indication: HYPERCHOLESTEROLAEMIA
     Dosage: 20 MG (1 DF), PER DAY
     Route: 048
     Dates: end: 20160606
  7. DOLIPRANE [Suspect]
     Active Substance: ACETAMINOPHEN
     Indication: PAIN
     Dosage: 1 G, IF NEEDED
     Route: 048
  8. JANUVIA [Suspect]
     Active Substance: SITAGLIPTIN PHOSPHATE
     Indication: DIABETES MELLITUS
     Dosage: 100 MG (1 DF), PER DAY
     Route: 048
     Dates: end: 20160606
  9. OXYNORMORO [Suspect]
     Active Substance: OXYCODONE
     Indication: PAIN
     Dosage: IF NEEDED
     Route: 048
     Dates: start: 20160526
  10. KARDEGIC [Suspect]
     Active Substance: ASPIRIN LYSINE
     Indication: CARDIOVASCULAR EVENT PROPHYLAXIS
     Dosage: 75 MG (1 DF), PER DAY, IN SACHET
     Route: 048
  11. PREDNISONE MYLAN [Suspect]
     Active Substance: PREDNISONE
     Indication: PRODUCT USED FOR UNKNOWN INDICATION
     Dosage: 1 MG, PER DAY
     Route: 048
     Dates: end: 20160606
  12. NORMACOL [Suspect]
     Active Substance: KARAYA GUM
     Indication: CONSTIPATION
     Dosage: IF NEEDED
     Route: 054
     Dates: start: 20160507
  13. OXYCONTIN [Suspect]
     Active Substance: OXYCODONE HYDROCHLORIDE
     Indication: PAIN
     Dosage: 10 MG, 2 PER DAY
     Route: 048
     Dates: start: 20160526
  14. NICORANDIL BIOGARAN [Suspect]
     Active Substance: NICORANDIL
     Indication: ANGINA UNSTABLE
     Dosage: 20 MG (1 DF), PER DAY
     Route: 048
  15. ESOMEPRAZOLE EG [Suspect]
     Active Substance: ESOMEPRAZOLE
     Indication: GASTROOESOPHAGEAL REFLUX DISEASE
     Dosage: 1 DF, PER DAY
     Route: 048
     Dates: end: 20160606

REACTIONS (1)
  - Hepatic function abnormal [Fatal]

NARRATIVE: CASE EVENT DATE: 20160609
